FAERS Safety Report 18748523 (Version 3)
Quarter: 2021Q1

REPORT INFORMATION
  Report Type: Spontaneous
  Country: US (occurrence: US)
  Receive Date: 20210115
  Receipt Date: 20210125
  Transmission Date: 20210419
  Serious: Yes (Other)
  Sender: FDA-Public Use
  Company Number: US-009507513-2101USA007516

PATIENT
  Age: 22 Year
  Sex: Female

DRUGS (7)
  1. VITAMINS (UNSPECIFIED) [Concomitant]
     Active Substance: VITAMINS
     Dosage: UNK
  2. NEXPLANON [Suspect]
     Active Substance: ETONOGESTREL
     Indication: MENSTRUATION IRREGULAR
  3. NEXPLANON [Suspect]
     Active Substance: ETONOGESTREL
     Indication: MENSTRUATION IRREGULAR
  4. NEXPLANON [Suspect]
     Active Substance: ETONOGESTREL
     Dosage: 1 DOSAGE FORM
     Route: 059
     Dates: start: 20210108
  5. NEXPLANON [Suspect]
     Active Substance: ETONOGESTREL
     Indication: CONTRACEPTION
     Dosage: 1 DOSAGE FORM
     Route: 059
     Dates: end: 20210105
  6. NEXPLANON [Suspect]
     Active Substance: ETONOGESTREL
     Indication: CONTRACEPTION
     Dosage: 1 IMPLANT, EVERY 3 YEARS
     Route: 030
     Dates: start: 20210105, end: 20210108
  7. NEXPLANON [Suspect]
     Active Substance: ETONOGESTREL
     Indication: CONTRACEPTION
     Dosage: 68 MILLIGRAMS (MG), 1 IMPLANT, EVERY 3 YEARS (IN UPPER ARM)
     Route: 059
     Dates: start: 20210105, end: 20210108

REACTIONS (9)
  - Paraesthesia [Recovering/Resolving]
  - Implant site swelling [Recovering/Resolving]
  - Implant site pain [Unknown]
  - Incorrect route of product administration [Unknown]
  - Device dislocation [Recovered/Resolved]
  - Burning sensation [Recovering/Resolving]
  - Pain in extremity [Recovering/Resolving]
  - Erythema [Unknown]
  - Product use in unapproved indication [Unknown]

NARRATIVE: CASE EVENT DATE: 202101
